FAERS Safety Report 10192083 (Version 1)
Quarter: 2014Q2

REPORT INFORMATION
  Report Type: Spontaneous
  Country: US (occurrence: US)
  Receive Date: 20140523
  Receipt Date: 20140523
  Transmission Date: 20141212
  Serious: No
  Sender: FDA-Public Use
  Company Number: US-PFIZER INC-2014141082

PATIENT
  Age: 69 Year
  Sex: Female
  Weight: 90.7 kg

DRUGS (13)
  1. AROMASIN [Suspect]
     Indication: BREAST CANCER
     Dosage: 125 MG, DAILY
     Dates: start: 2014
  2. METFORMIN [Concomitant]
     Indication: DIABETES MELLITUS
     Dosage: 750 MG, 2X/DAY
  3. COLCRYS [Concomitant]
     Indication: GOUT
     Dosage: 0.6 MG, DAILY
  4. MILK THISTLE [Concomitant]
     Indication: LIVER DISORDER
     Dosage: 500 MG, 2X/DAY
  5. VITAMIN E [Concomitant]
     Indication: LIVER DISORDER
     Dosage: 400 MG, DAILY
  6. COENZIME Q10 [Concomitant]
     Indication: LIVER DISORDER
     Dosage: 100 MG, DAILY
  7. POLICOSANOL [Concomitant]
     Indication: BLOOD CHOLESTEROL INCREASED
     Dosage: 10 MG, 2X/DAY
  8. ULTRAM [Concomitant]
     Indication: RHEUMATOID ARTHRITIS
     Dosage: 500 MG, UNK
  9. FISH OIL [Concomitant]
     Dosage: 2000 MG, 2X/DAY
  10. CINNAMON [Concomitant]
     Dosage: 375 MG, 2X/DAY
  11. NORVASC [Concomitant]
     Dosage: 5 MG, DAILY
  12. METOPROLOL [Concomitant]
     Dosage: 25 MG, DAILY
  13. BENICAR [Concomitant]
     Dosage: UNK, DAILY

REACTIONS (2)
  - Fatigue [Unknown]
  - Blood test abnormal [Unknown]
